FAERS Safety Report 6793371-2 (Version None)
Quarter: 2010Q2

REPORT INFORMATION
  Report Type: 
  Country: None (occurrence: None)
  Receive Date: 20100624
  Receipt Date: 20100223
  Transmission Date: 20101027
  Serious: Yes (Other)
  Sender: FDA-Public Use
  Company Number: US-MYLANLABS-2010S1000291

PATIENT
  Age: 50 Year
  Sex: Male
  Weight: 109.09 kg

DRUGS (4)
  1. CLOZAPINE [Suspect]
     Indication: PSYCHOTIC BEHAVIOUR
     Dates: start: 20080108, end: 20091201
  2. CLOZAPINE [Suspect]
  3. BENADRYL [Concomitant]
  4. KLONOPIN [Concomitant]

REACTIONS (1)
  - GRANULOCYTOPENIA [None]
